FAERS Safety Report 5077972-8 (Version None)
Quarter: 2006Q3

REPORT INFORMATION
  Report Type: 
  Country: None (occurrence: None)
  Receive Date: 20060811
  Receipt Date: 20051130
  Transmission Date: 20061208
  Serious: Yes (Hospitalization)
  Sender: FDA-Public Use
  Company Number: PHBS2005JP17943

PATIENT
  Age: 70 Year
  Sex: Male
  Weight: 49 kg

DRUGS (6)
  1. LAMISIL [Suspect]
     Indication: NAIL TINEA
     Dosage: 125 MG/DAY
     Route: 048
     Dates: start: 20041222, end: 20050216
  2. PREDNISOLONE [Concomitant]
     Dosage: 5 MG/DAY
     Route: 048
  3. DIGOSIN [Concomitant]
     Dosage: 0.25 MG/DAY
  4. PANALDINE [Concomitant]
     Dosage: 100 MG/DAY
     Route: 048
  5. KLARICID [Concomitant]
     Dosage: 200 MG/DAY
     Route: 048
  6. MARZULENE S [Concomitant]
     Dosage: 1 DF/DAY
     Route: 048

REACTIONS (7)
  - ALANINE AMINOTRANSFERASE INCREASED [None]
  - ASPARTATE AMINOTRANSFERASE INCREASED [None]
  - BLOOD ALKALINE PHOSPHATASE INCREASED [None]
  - BLOOD LACTATE DEHYDROGENASE INCREASED [None]
  - GAMMA-GLUTAMYLTRANSFERASE INCREASED [None]
  - HEPATIC CYST [None]
  - HEPATIC FUNCTION ABNORMAL [None]
